FAERS Safety Report 6749662 (Version 2)
Quarter: 2015Q3

REPORT INFORMATION
  Report Type: Spontaneous
  Country: AU (occurrence: AU)
  Receive Date: 20080905
  Receipt Date: 20150929
  Transmission Date: 20151125
  Serious: Yes (Hospitalization)
  Sender: FDA-Public Use
  Company Number: AU-PFIZER INC-2008071227

PATIENT
  Sex: Female
  Weight: 69 kg

DRUGS (1)
  1. CHAMPIX [Suspect]
     Active Substance: VARENICLINE TARTRATE
     Indication: SMOKING CESSATION THERAPY
     Dosage: 2 MG, DAILY
     Route: 048
     Dates: start: 20080430, end: 20080610

REACTIONS (2)
  - Psychotic disorder [Recovered/Resolved]
  - Bipolar I disorder [Recovered/Resolved]

NARRATIVE: CASE EVENT DATE: 2008
